FAERS Safety Report 26092596 (Version 1)
Quarter: 2025Q4

REPORT INFORMATION
  Report Type: Spontaneous
  Country: CN (occurrence: CN)
  Receive Date: 20251126
  Receipt Date: 20251126
  Transmission Date: 20260118
  Serious: Yes (Life-Threatening, Hospitalization, Other)
  Sender: ALKEM
  Company Number: None

PATIENT
  Age: 44 Year
  Sex: Female

DRUGS (5)
  1. MYCOPHENOLATE MOFETIL [Suspect]
     Active Substance: MYCOPHENOLATE MOFETIL
     Indication: Uveitis
     Dosage: 6 DOSAGE FORM, QD
     Route: 048
  2. ADALIMUMAB [Suspect]
     Active Substance: ADALIMUMAB
     Indication: Uveitis
     Dosage: 400 MILLIGRAM, ONCE IN 2 WEEKS
     Route: 065
  3. METHYLPREDNISOLONE [Suspect]
     Active Substance: METHYLPREDNISOLONE
     Indication: Uveitis
     Dosage: 16 MILLIGRAM, QD
     Route: 065
  4. METHYLPREDNISOLONE [Suspect]
     Active Substance: METHYLPREDNISOLONE
     Indication: Prophylaxis
     Dosage: 40 MILLIGRAM, QD
     Route: 042
  5. METHOTREXATE [Suspect]
     Active Substance: METHOTREXATE
     Indication: Uveitis
     Dosage: 12.5 MILLIGRAM, ONCE WEEKLY
     Route: 065

REACTIONS (11)
  - Bronchiectasis [Recovering/Resolving]
  - Respiratory failure [Recovering/Resolving]
  - Liver function test abnormal [Recovered/Resolved]
  - Bronchopulmonary aspergillosis [Recovering/Resolving]
  - COVID-19 pneumonia [Recovering/Resolving]
  - Pneumonia acinetobacter [Recovering/Resolving]
  - Pneumonia bacterial [Recovering/Resolving]
  - Pneumonia cytomegaloviral [Recovering/Resolving]
  - Pneumocystis jirovecii pneumonia [Unknown]
  - Pneumonia klebsiella [Recovering/Resolving]
  - Penicillium infection [Recovering/Resolving]

NARRATIVE: CASE EVENT DATE: 20230601
